FAERS Safety Report 17956903 (Version 1)
Quarter: 2020Q2

REPORT INFORMATION
  Report Type: Report from Study
  Country: NL (occurrence: NL)
  Receive Date: 20200629
  Receipt Date: 20200629
  Transmission Date: 20200714
  Serious: Yes (Death, Hospitalization, Other)
  Sender: FDA-Public Use
  Company Number: NL-PFIZER INC-2020241224

PATIENT
  Age: 54 Year
  Sex: Male
  Weight: 73 kg

DRUGS (7)
  1. AZACITIDINE. [Concomitant]
     Active Substance: AZACITIDINE
     Dosage: UNK
     Dates: start: 20200120
  2. VENETOCLAX. [Suspect]
     Active Substance: VENETOCLAX
     Dosage: RAMP UP DOSING SCHEDULE 20MG - 50MG - 100MG
     Route: 048
     Dates: start: 20200121, end: 2020
  3. FLUCONAZOLE. [Concomitant]
     Active Substance: FLUCONAZOLE
     Dosage: UNK
     Dates: start: 20200120
  4. VENETOCLAX. [Suspect]
     Active Substance: VENETOCLAX
     Dosage: UNK
     Route: 048
     Dates: start: 2020, end: 2020
  5. CYCLOSPORINE. [Concomitant]
     Active Substance: CYCLOSPORINE
     Dosage: UNK
  6. VORICONAZOLE. [Suspect]
     Active Substance: VORICONAZOLE
     Dosage: UNK
     Route: 065
  7. VENETOCLAX. [Suspect]
     Active Substance: VENETOCLAX
     Indication: ACUTE MYELOID LEUKAEMIA
     Dosage: 200 MG, 1X/DAY
     Route: 048
     Dates: start: 2020, end: 2020

REACTIONS (8)
  - COVID-19 [Fatal]
  - Pneumonia [Fatal]
  - Acute respiratory failure [Fatal]
  - Pancytopenia [Fatal]
  - Disseminated intravascular coagulation [Fatal]
  - Neuropathy peripheral [Fatal]
  - Oedema [Fatal]
  - Skin infection [Fatal]

NARRATIVE: CASE EVENT DATE: 2020
